FAERS Safety Report 25359970 (Version 1)
Quarter: 2025Q2

REPORT INFORMATION
  Report Type: Report from Study
  Country: US (occurrence: US)
  Receive Date: 20250526
  Receipt Date: 20250526
  Transmission Date: 20250717
  Serious: Yes (Other)
  Sender: ABBVIE
  Company Number: US-ABBVIE-6293730

PATIENT
  Sex: Female

DRUGS (1)
  1. SKYRIZI [Suspect]
     Active Substance: RISANKIZUMAB-RZAA
     Indication: Rheumatoid arthritis
     Route: 058

REACTIONS (7)
  - Fat tissue increased [Unknown]
  - Pelvic fracture [Unknown]
  - Feeling abnormal [Unknown]
  - Impaired healing [Unknown]
  - Wound [Unknown]
  - Wrong technique in product usage process [Unknown]
  - Impaired healing [Unknown]
